FAERS Safety Report 9141668 (Version 2)
Quarter: 2013Q2

REPORT INFORMATION
  Report Type: Spontaneous
  Country: US (occurrence: US)
  Receive Date: 20130305
  Receipt Date: 20130404
  Transmission Date: 20140414
  Serious: No
  Sender: FDA-Public Use
  Company Number: US-AMGEN-USASP2013013102

PATIENT
  Age: 32 Year
  Sex: Female
  Weight: 77.1 kg

DRUGS (2)
  1. ENBREL [Suspect]
     Indication: RHEUMATOID ARTHRITIS
     Dosage: 50 MG, QWK
     Route: 058
     Dates: start: 20130125
  2. MINOCYCLINE [Concomitant]
     Indication: RHEUMATOID ARTHRITIS
     Dosage: 100 MG, BID
     Route: 048
     Dates: start: 20120611

REACTIONS (1)
  - Vulvovaginal mycotic infection [Recovered/Resolved]
